FAERS Safety Report 18085788 (Version 1)
Quarter: 2020Q3

REPORT INFORMATION
  Report Type: Spontaneous
  Country: TH (occurrence: TH)
  Receive Date: 20200728
  Receipt Date: 20200728
  Transmission Date: 20201103
  Serious: Yes (Other)
  Sender: FDA-Public Use
  Company Number: TH-009507513-2007THA008960

PATIENT
  Sex: Male

DRUGS (1)
  1. KEYTRUDA [Suspect]
     Active Substance: PEMBROLIZUMAB
     Indication: MALIGNANT MELANOMA
     Dosage: 100 MG/CYCLE

REACTIONS (3)
  - Incorrect dose administered [Unknown]
  - Malignant neoplasm progression [Unknown]
  - Tumour necrosis [Unknown]
